FAERS Safety Report 4922380-0 (Version None)
Quarter: 2006Q1

REPORT INFORMATION
  Report Type: 
  Country: None (occurrence: None)
  Receive Date: 20060224
  Receipt Date: 20051011
  Transmission Date: 20060701
  Serious: Yes (Hospitalization)
  Sender: FDA-Public Use
  Company Number: US-MERCK-0510USA06920

PATIENT
  Age: 73 Year
  Sex: Female
  Weight: 59 kg

DRUGS (6)
  1. VIOXX [Suspect]
     Indication: ARTHRITIS
     Route: 048
     Dates: start: 20030721, end: 20040501
  2. VIOXX [Suspect]
     Route: 048
     Dates: start: 20031218
  3. VIOXX [Suspect]
     Indication: TEMPOROMANDIBULAR JOINT SYNDROME
     Route: 048
     Dates: start: 20030721, end: 20040501
  4. VIOXX [Suspect]
     Route: 048
     Dates: start: 20031218
  5. FOSAMAX [Concomitant]
     Route: 048
  6. CARAFATE [Concomitant]
     Route: 065

REACTIONS (7)
  - ANXIETY [None]
  - CELLULITIS [None]
  - CORONARY ARTERY OCCLUSION [None]
  - HYPERLIPIDAEMIA [None]
  - INJURY [None]
  - MUSCLE STRAIN [None]
  - MYOCARDIAL INFARCTION [None]
